FAERS Safety Report 4446327-9 (Version None)
Quarter: 2004Q3

REPORT INFORMATION
  Report Type: 
  Country: None (occurrence: None)
  Receive Date: 20040907
  Receipt Date: 20040824
  Transmission Date: 20050211
  Serious: Yes (Other)
  Sender: FDA-Public Use
  Company Number: 2004059432

PATIENT
  Age: 56 Year
  Sex: Female
  Weight: 88.905 kg

DRUGS (10)
  1. NORVASC [Suspect]
     Indication: HYPERTENSION
     Dosage: 5 MG (5 MG, 1 IN 1 D),
     Dates: start: 20010101
  2. OMEPRAZOLE [Suspect]
     Indication: GASTROOESOPHAGEAL REFLUX DISEASE
     Dosage: ORAL
     Route: 048
     Dates: start: 20030101
  3. OXYGEN (OXYGEN) [Concomitant]
  4. FLUOXETINE HYDROCHLORIDE [Concomitant]
  5. OMEPRAZOLE [Concomitant]
  6. CALCITONIN, SALMON (CALCITONIN, SALMON) [Concomitant]
  7. GUAIFENESIN (GUAIFENESIN) [Concomitant]
  8. FEXOFENADINE HYDROCHLORIDE [Concomitant]
  9. SALBUTAMOL (SALBUTAMOL) [Concomitant]
  10. ALPRAZOLAM [Concomitant]

REACTIONS (18)
  - ABNORMAL CLOTTING FACTOR [None]
  - ADRENAL DISORDER [None]
  - ALDOSTERONE URINE DECREASED [None]
  - BLOOD FIBRINOGEN INCREASED [None]
  - DEHYDROEPIANDROSTERONE DECREASED [None]
  - DIHYDROTESTOSTERONE DECREASED [None]
  - DRUG ADDICT [None]
  - DYSPEPSIA [None]
  - GASTROOESOPHAGEAL REFLUX DISEASE [None]
  - HORMONE LEVEL ABNORMAL [None]
  - HYPERTENSION [None]
  - HYPOPITUITARISM [None]
  - HYPOTENSION [None]
  - OESTRADIOL DECREASED [None]
  - ORTHOSTATIC HYPOTENSION [None]
  - OXYGEN SATURATION DECREASED [None]
  - PHARMACEUTICAL PRODUCT COMPLAINT [None]
  - PRURITUS [None]
